FAERS Safety Report 7316246-9 (Version None)
Quarter: 2011Q1

REPORT INFORMATION
  Report Type: 
  Country: None (occurrence: None)
  Receive Date: 20110225
  Receipt Date: 20110223
  Transmission Date: 20110831
  Serious: Yes (Other)
  Sender: FDA-Public Use
  Company Number: IE-PFIZER INC-2010163764

PATIENT
  Age: 50 Year
  Sex: Male

DRUGS (1)
  1. LIPITOR [Suspect]
     Indication: HYPERCHOLESTEROLAEMIA
     Dosage: 10 MG, AT NIGHT

REACTIONS (4)
  - FLUSHING [None]
  - DIZZINESS [None]
  - ASTHENIA [None]
  - BLOOD PRESSURE INCREASED [None]
